FAERS Safety Report 10254271 (Version 1)
Quarter: 2014Q2

REPORT INFORMATION
  Report Type: Spontaneous
  Country: JP (occurrence: JP)
  Receive Date: 20140624
  Receipt Date: 20140624
  Transmission Date: 20141212
  Serious: Yes (Hospitalization, Other)
  Sender: FDA-Public Use
  Company Number: JP-ROCHE-CID000000003415089

PATIENT
  Age: 71 Year
  Sex: Male
  Weight: 48 kg

DRUGS (14)
  1. SOVRIAD [Suspect]
     Indication: CHRONIC HEPATITIS C
     Route: 048
     Dates: start: 20140108, end: 20140404
  2. PEGASYS [Suspect]
     Indication: CHRONIC HEPATITIS C
     Route: 058
     Dates: start: 20140108, end: 20140129
  3. PEGASYS [Suspect]
     Route: 058
     Dates: start: 20140130, end: 20140305
  4. PEGASYS [Suspect]
     Route: 058
     Dates: start: 20140306
  5. COPEGUS [Suspect]
     Indication: CHRONIC HEPATITIS C
     Route: 048
     Dates: start: 20140108, end: 20140226
  6. COPEGUS [Suspect]
     Route: 048
     Dates: start: 20140227, end: 20140305
  7. COPEGUS [Suspect]
     Route: 048
     Dates: start: 20140306, end: 20140318
  8. COPEGUS [Suspect]
     Route: 048
     Dates: start: 20140319, end: 20140326
  9. COPEGUS [Suspect]
     Route: 048
     Dates: start: 20140327
  10. LOXONIN [Concomitant]
     Indication: PYREXIA
     Route: 065
  11. OMEPRAZOLE [Concomitant]
     Indication: GASTROOESOPHAGEAL REFLUX DISEASE
     Route: 048
     Dates: start: 20140214
  12. NU-LOTAN [Concomitant]
     Indication: HYPERTENSION
     Route: 048
     Dates: start: 201309
  13. LYRICA [Concomitant]
     Indication: NEUROPATHY PERIPHERAL
     Route: 048
     Dates: start: 20140207
  14. LENDORMIN [Concomitant]
     Indication: INSOMNIA
     Dosage: 1 AS NECESSARY
     Route: 048
     Dates: end: 20140124

REACTIONS (6)
  - Anaemia [Not Recovered/Not Resolved]
  - Platelet count decreased [Not Recovered/Not Resolved]
  - White blood cell count decreased [Not Recovered/Not Resolved]
  - Tinnitus [Unknown]
  - Hypoaesthesia [Unknown]
  - Off label use [Unknown]
